FAERS Safety Report 6151062-5 (Version None)
Quarter: 2009Q2

REPORT INFORMATION
  Report Type: 
  Country: None (occurrence: None)
  Receive Date: 20090410
  Receipt Date: 20090331
  Transmission Date: 20091009
  Serious: No
  Sender: FDA-Public Use
  Company Number: US-JNJFOC-20090400600

PATIENT
  Sex: Male
  Weight: 158.76 kg

DRUGS (5)
  1. DURAGESIC-100 [Suspect]
     Indication: SCIATICA
     Route: 062
  2. SALSALATE [Concomitant]
     Indication: ARTHRITIS
     Route: 048
  3. SINGULAIR [Concomitant]
     Indication: ASTHMA
     Route: 048
  4. PRILOSEC [Concomitant]
     Indication: GASTRIC DISORDER
     Route: 048
  5. PLAQUENIL [Concomitant]
     Indication: SARCOIDOSIS
     Route: 048

REACTIONS (5)
  - APPLICATION SITE ERYTHEMA [None]
  - APPLICATION SITE PRURITUS [None]
  - PRURITUS GENERALISED [None]
  - WEIGHT DECREASED [None]
  - WRONG TECHNIQUE IN DRUG USAGE PROCESS [None]
